FAERS Safety Report 8523945-X (Version None)
Quarter: 2012Q3

REPORT INFORMATION
  Report Type: 
  Country: None (occurrence: None)
  Receive Date: 20120720
  Receipt Date: 20120712
  Transmission Date: 20120928
  Serious: Yes (Other)
  Sender: FDA-Public Use
  Company Number: US-BAYER-2012-070935

PATIENT
  Age: 37 Year
  Sex: Female

DRUGS (15)
  1. DEMEROL [Concomitant]
     Dosage: 12.5 MG, UNK
     Route: 042
     Dates: start: 20080708
  2. DROSPIRENONE AND ETHINYL ESTRADIOL [Suspect]
  3. DECADRON [Concomitant]
     Dosage: 8 MG, ONCE
     Route: 042
     Dates: start: 20080708
  4. TYLENOL [Concomitant]
     Dosage: 650 MG, EVERY 6 HOURS
     Dates: start: 20080704
  5. VICODIN [Concomitant]
     Indication: PAIN
     Dosage: 5/325 1-2 TAB EVERY 4 HR
     Route: 048
     Dates: start: 20080708
  6. YASMIN [Suspect]
     Route: 048
  7. CLEOCIN HYDROCHLORIDE [Concomitant]
     Dosage: 600 MG, UNK
     Route: 042
     Dates: start: 20080708
  8. FENTANYL [Concomitant]
     Dosage: 50 MCG, UNK
     Route: 042
     Dates: start: 20080708
  9. MORPHINE SULFATE [Concomitant]
     Dosage: 2 MG, UNK
     Route: 042
     Dates: start: 20080708
  10. ZOFRAN [Concomitant]
     Dosage: 4 MG, ONCE
     Route: 042
     Dates: start: 20080708
  11. LORTAB [Concomitant]
     Dosage: 5MG/325MG, 1-2 TABS Q 4H PRN
     Dates: start: 20080708
  12. IBUPROFEN [Concomitant]
     Indication: PAIN
     Dosage: 800 MG EVERY 6-8 HOURS
     Dates: start: 20080704
  13. VERSED [Concomitant]
     Dosage: 1 MG, UNK
     Route: 042
     Dates: start: 20080708
  14. MARCAINE HYDROCHLORIDE W/ EPINEPHRINE [Concomitant]
     Dosage: 20 ML, LOCAL LEFT ANKLE
     Dates: start: 20080708
  15. LOVENOX [Concomitant]
     Dosage: 40 MG, EVERYDAY
     Route: 058
     Dates: start: 20090709

REACTIONS (1)
  - DEEP VEIN THROMBOSIS [None]
